FAERS Safety Report 8407120-5 (Version None)
Quarter: 2012Q2

REPORT INFORMATION
  Report Type: 
  Country: None (occurrence: None)
  Receive Date: 20120604
  Receipt Date: 20120530
  Transmission Date: 20120825
  Serious: Yes (Hospitalization)
  Sender: FDA-Public Use
  Company Number: DE-ROCHE-1074206

PATIENT
  Sex: Female

DRUGS (4)
  1. DOCETAXEL [Concomitant]
     Indication: BREAST CANCER
  2. CYCLOPHOSPHAMIDE [Concomitant]
     Indication: BREAST CANCER
  3. EPIRUBICIN [Concomitant]
     Indication: BREAST CANCER
  4. HERCEPTIN [Suspect]
     Indication: BREAST CANCER

REACTIONS (1)
  - TRANSAMINASES INCREASED [None]
